FAERS Safety Report 9226777 (Version 2)
Quarter: 2013Q2

REPORT INFORMATION
  Report Type: Spontaneous
  Country: US (occurrence: None)
  Receive Date: 20130410
  Receipt Date: 20130426
  Transmission Date: 20140414
  Serious: Yes (Other)
  Sender: FDA-Public Use
  Company Number: M-13-005

PATIENT
  Age: 90 Year
  Sex: Female

DRUGS (7)
  1. DIGOXIN [Suspect]
     Indication: CEREBROVASCULAR ACCIDENT
     Dosage: ONE TABLET PER DAY ORAL
     Route: 048
     Dates: start: 20130131
  2. ATENOLOL [Concomitant]
  3. LISINOPRIL [Concomitant]
  4. SIMVASTATIN [Concomitant]
  5. WARFARIN [Concomitant]
  6. KEPPRA [Concomitant]
  7. CIPRO [Concomitant]

REACTIONS (1)
  - Drug level below therapeutic [None]
